FAERS Safety Report 11864021 (Version 2)
Quarter: 2016Q3

REPORT INFORMATION
  Report Type: Spontaneous
  Country: TN (occurrence: TN)
  Receive Date: 20151223
  Receipt Date: 20160712
  Transmission Date: 20161109
  Serious: Yes (Other)
  Sender: FDA-Public Use
  Company Number: TN-BRISTOL-MYERS SQUIBB COMPANY-BMS-2015-088451

PATIENT
  Age: 16 Year
  Sex: Female

DRUGS (3)
  1. BLEOMYCIN SULFATE [Suspect]
     Active Substance: BLEOMYCIN SULFATE
     Indication: PERITONEAL GLIOMATOSIS
     Dosage: 30 MG, Q3WK
     Route: 042
  2. CISPLATIN. [Suspect]
     Active Substance: CISPLATIN
     Indication: PERITONEAL GLIOMATOSIS
     Dosage: 20 MG/M2, Q3WK
     Route: 042
  3. ETOPOSIDE. [Suspect]
     Active Substance: ETOPOSIDE
     Indication: PERITONEAL GLIOMATOSIS
     Dosage: 100 MG/M2, QCYCLE
     Route: 042

REACTIONS (2)
  - Off label use [Unknown]
  - Cerebral venous thrombosis [Recovered/Resolved]
